FAERS Safety Report 21202927 (Version 3)
Quarter: 2022Q3

REPORT INFORMATION
  Report Type: Spontaneous
  Country: RO (occurrence: RO)
  Receive Date: 20220811
  Receipt Date: 20220920
  Transmission Date: 20221027
  Serious: Yes (Other)
  Sender: FDA-Public Use
  Company Number: RO-NOVARTISPH-NVSC2022RO181619

PATIENT
  Age: 57 Year
  Sex: Female

DRUGS (17)
  1. ZOMETA [Suspect]
     Active Substance: ZOLEDRONIC ACID
     Indication: Plasma cell myeloma
     Dosage: UNK
     Route: 065
     Dates: start: 2010, end: 2010
  2. ZOMETA [Suspect]
     Active Substance: ZOLEDRONIC ACID
     Indication: Mineral supplementation
     Dosage: UNK
     Route: 065
     Dates: start: 2015, end: 2018
  3. DEXAMETHASONE [Suspect]
     Active Substance: DEXAMETHASONE
     Indication: Autologous bone marrow transplantation therapy
     Dosage: INDUCTION TREATMENT, 4 ROUNDS OF (VCD)
     Route: 065
     Dates: start: 2010, end: 2010
  4. DEXAMETHASONE [Suspect]
     Active Substance: DEXAMETHASONE
     Indication: Plasma cell myeloma
     Dosage: UNK, FOUR ROUNDS
     Route: 065
     Dates: start: 2010
  5. DEXAMETHASONE [Suspect]
     Active Substance: DEXAMETHASONE
     Dosage: 6ROUNDS OF MODIFIED VAD(WITH ALKERAN)
     Route: 065
     Dates: start: 2011
  6. DEXAMETHASONE [Suspect]
     Active Substance: DEXAMETHASONE
     Dosage: UNK
     Route: 065
     Dates: start: 201810
  7. CYCLOPHOSPHAMIDE [Suspect]
     Active Substance: CYCLOPHOSPHAMIDE
     Indication: Autologous bone marrow transplantation therapy
     Dosage: INDUCTION TREATMENT, 4 ROUNDS OF (VCD)
     Route: 065
     Dates: start: 2010, end: 2010
  8. DOXORUBICIN [Suspect]
     Active Substance: DOXORUBICIN
     Indication: Autologous bone marrow transplantation therapy
     Dosage: UNK, FOUR ROUNDS
     Route: 065
     Dates: start: 2010
  9. DOXORUBICIN [Suspect]
     Active Substance: DOXORUBICIN
     Dosage: 6ROUNDS OF MODIFIEDVAD(WTHALKERAN)
     Route: 065
     Dates: start: 2011
  10. VELCADE [Suspect]
     Active Substance: BORTEZOMIB
     Indication: Autologous bone marrow transplantation therapy
     Dosage: UNK
     Route: 065
     Dates: start: 2010, end: 2010
  11. VINCRISTINE [Suspect]
     Active Substance: VINCRISTINE
     Indication: Autologous bone marrow transplantation therapy
     Dosage: UNK, FOUR ROUNDS
     Route: 065
     Dates: start: 2010
  12. VINCRISTINE [Suspect]
     Active Substance: VINCRISTINE
     Dosage: 6ROUNDSOFMODIFIEDVAD(WTHALKERAN)
     Route: 065
     Dates: start: 2011
  13. ALKERAN [Concomitant]
     Active Substance: MELPHALAN
     Indication: Plasma cell myeloma
     Dosage: 200 MILLILITRE PER SQUARE METRE, UNKNOWN
     Route: 042
     Dates: start: 2011
  14. DARZALEX [Concomitant]
     Active Substance: DARATUMUMAB
     Indication: Plasma cell myeloma
     Dosage: UNK
     Route: 065
     Dates: start: 201109, end: 2011
  15. IXAZOMIB [Concomitant]
     Active Substance: IXAZOMIB
     Indication: Plasma cell myeloma
     Dosage: UNK
     Route: 065
     Dates: start: 201810
  16. DEXAMETHASONE [Concomitant]
     Active Substance: DEXAMETHASONE
     Indication: Plasma cell myeloma
     Dosage: UNK
     Route: 065
     Dates: start: 201810
  17. LENALIDOMIDE [Concomitant]
     Active Substance: LENALIDOMIDE
     Indication: Plasma cell myeloma
     Dosage: UNK
     Route: 065
     Dates: start: 201810

REACTIONS (1)
  - Neuropathy peripheral [Unknown]

NARRATIVE: CASE EVENT DATE: 20100101
